FAERS Safety Report 19889782 (Version 1)
Quarter: 2021Q3

REPORT INFORMATION
  Report Type: Spontaneous
  Country: US (occurrence: US)
  Receive Date: 20210928
  Receipt Date: 20210928
  Transmission Date: 20211014
  Serious: Yes (Other)
  Sender: FDA-Public Use
  Company Number: US-BAYER-2021A216786

PATIENT
  Age: 32 Year
  Sex: Female

DRUGS (2)
  1. ACETYLSALICYLIC ACID [Suspect]
     Active Substance: ASPIRIN
     Indication: GYNAECOLOGICAL DISORDER PROPHYLAXIS
     Dosage: 81 MG, QD
     Route: 048
  2. LABETALOL [Concomitant]
     Active Substance: LABETALOL\LABETALOL HYDROCHLORIDE
     Indication: HYPERTENSION
     Dosage: 400 MG, BID
     Route: 048

REACTIONS (6)
  - Premature labour [None]
  - Caesarean section [None]
  - Off label use [None]
  - Premature rupture of membranes [None]
  - Oligohydramnios [None]
  - Maternal exposure during pregnancy [None]
